FAERS Safety Report 12729492 (Version 4)
Quarter: 2016Q4

REPORT INFORMATION
  Report Type: Spontaneous
  Country: JP (occurrence: JP)
  Receive Date: 20160909
  Receipt Date: 20161108
  Transmission Date: 20170207
  Serious: Yes (Life-Threatening, Hospitalization, Other)
  Sender: FDA-Public Use
  Company Number: JP-009507513-1607JPN000850

PATIENT
  Age: 3 Year
  Sex: Female
  Weight: 14 kg

DRUGS (13)
  1. MEROPEN [Suspect]
     Active Substance: MEROPENEM
     Indication: DEVICE RELATED INFECTION
  2. FLUCONAZOLE. [Concomitant]
     Active Substance: FLUCONAZOLE
     Indication: INFECTION PROPHYLAXIS
     Dosage: 50MG DAILY IN 3 DIVIDED DOSES
     Route: 048
     Dates: start: 20150909, end: 20160608
  3. CANCIDAS [Suspect]
     Active Substance: CASPOFUNGIN ACETATE
     Dosage: 40 MG DAILY
     Route: 041
     Dates: start: 20160606, end: 20160606
  4. CUBICIN [Suspect]
     Active Substance: DAPTOMYCIN
     Indication: PYREXIA
     Dosage: 80 MG DAILY
     Route: 041
     Dates: start: 20160606, end: 20160608
  5. ACELIO [Concomitant]
     Active Substance: ACETAMINOPHEN
     Indication: PAIN
     Dosage: 140 MG, AS NEEDED
     Route: 041
     Dates: start: 20160605, end: 20160606
  6. BAKTAR [Concomitant]
     Active Substance: SULFAMETHOXAZOLE\TRIMETHOPRIM
     Indication: INFECTION PROPHYLAXIS
     Dosage: 0.3 G, BID
     Route: 048
     Dates: start: 20150909, end: 20160608
  7. METHOTREXATE. [Suspect]
     Active Substance: METHOTREXATE
     Dosage: 12.5 MG, (DIVIDED DOSE FREQUENCY UNKNOWN)
     Route: 028
     Dates: start: 20160601, end: 20160601
  8. BFLUID [Concomitant]
     Active Substance: AMINO ACIDS\DEXTROSE\ELECTROLYTES NOS\VITAMINS
     Indication: HYPOPHAGIA
     Dosage: 500 ML, (DIVIDED DOSE FREQUENCY UNKNOWN)
     Route: 041
     Dates: start: 20160604, end: 20160606
  9. METHOTREXATE. [Suspect]
     Active Substance: METHOTREXATE
     Indication: ACUTE LYMPHOCYTIC LEUKAEMIA
     Dosage: 290 MG, (DIVIDED DOSE FREQUENCY UNKNOWN)
     Route: 041
     Dates: start: 20160601, end: 20160601
  10. HYDROCORTONE [Concomitant]
     Active Substance: HYDROCORTISONE
     Dosage: DAILY DOSAGE UNKNOWN
     Route: 065
     Dates: end: 201606
  11. FULCALIQ [Concomitant]
     Active Substance: AMINO ACIDS\CARBOHYDRATES\ELECTROLYTES NOS\VITAMINS
     Indication: HYPOPHAGIA
     Dosage: 903 ML, (DIVIDED DOSE FREQUENCY UNKNOWN)
     Route: 041
     Dates: start: 20160606, end: 20160614
  12. CANCIDAS [Suspect]
     Active Substance: CASPOFUNGIN ACETATE
     Indication: FUNGAL INFECTION
     Dosage: 30 MG DAILY
     Route: 041
     Dates: start: 20160607, end: 20160607
  13. MEROPEN [Suspect]
     Active Substance: MEROPENEM
     Indication: PYREXIA
     Dosage: 500 MG, TID
     Route: 041
     Dates: start: 20160604, end: 20160608

REACTIONS (5)
  - Hypogammaglobulinaemia [Recovered/Resolved]
  - Stevens-Johnson syndrome [Recovered/Resolved]
  - Febrile neutropenia [Recovered/Resolved]
  - Thrombocytopenia [Recovered/Resolved]
  - Anaemia [Unknown]

NARRATIVE: CASE EVENT DATE: 2016
